FAERS Safety Report 7320233-4 (Version None)
Quarter: 2011Q1

REPORT INFORMATION
  Report Type: 
  Country: None (occurrence: None)
  Receive Date: 20110223
  Receipt Date: 20110223
  Transmission Date: 20110831
  Serious: No
  Sender: FDA-Public Use
  Company Number: None

PATIENT
  Age: 54 Year
  Sex: Male

DRUGS (1)
  1. LEVOFLOXACIN [Suspect]
     Indication: BIOPSY PROSTATE
     Dosage: 500 MG ONCE PO
     Route: 048
     Dates: start: 20110201, end: 20110201

REACTIONS (2)
  - HYPOTENSION [None]
  - ANGIOEDEMA [None]
